FAERS Safety Report 6720537-X (Version None)
Quarter: 2010Q2

REPORT INFORMATION
  Report Type: 
  Country: None (occurrence: None)
  Receive Date: 20100511
  Receipt Date: 20100511
  Transmission Date: 20101027
  Serious: No
  Sender: FDA-Public Use
  Company Number: None

PATIENT
  Sex: Male

DRUGS (1)
  1. IBUPROFEN [Suspect]
     Route: 048
     Dates: start: 20100506, end: 20100506

REACTIONS (2)
  - CRYING [None]
  - ORAL DISCOMFORT [None]
